FAERS Safety Report 8533086-3 (Version None)
Quarter: 2012Q3

REPORT INFORMATION
  Report Type: 
  Country: None (occurrence: None)
  Receive Date: 20120712
  Receipt Date: 20120706
  Transmission Date: 20120928
  Serious: Yes (Other)
  Sender: FDA-Public Use
  Company Number: 136322

PATIENT
  Age: 59 Year
  Sex: Female
  Weight: 81.6475 kg

DRUGS (3)
  1. RITUXAN [Concomitant]
  2. METHOTREXATE [Suspect]
     Indication: RHEUMATOID ARTHRITIS
     Dosage: 0.6ML WEEKLY
  3. METHOTREXATE [Suspect]
     Indication: NERVE INJURY
     Dosage: 0.6ML WEEKLY

REACTIONS (5)
  - CIRCUMSTANCE OR INFORMATION CAPABLE OF LEADING TO MEDICATION ERROR [None]
  - FEELING ABNORMAL [None]
  - EXPIRED DRUG ADMINISTERED [None]
  - WRONG TECHNIQUE IN DRUG USAGE PROCESS [None]
  - MEDICATION ERROR [None]
